FAERS Safety Report 12249565 (Version 1)
Quarter: 2016Q2

REPORT INFORMATION
  Report Type: Spontaneous
  Country: TR (occurrence: TR)
  Receive Date: 20160408
  Receipt Date: 20160408
  Transmission Date: 20160815
  Serious: Yes (Other)
  Sender: FDA-Public Use
  Company Number: TR-BAYER-2016-066084

PATIENT
  Age: 37 Year
  Sex: Female

DRUGS (5)
  1. VISANNE [Suspect]
     Active Substance: DIENOGEST
     Indication: ENDOMETRIOSIS
  2. YASMIN [Suspect]
     Active Substance: DROSPIRENONE\ETHINYL ESTRADIOL
     Indication: ENDOMETRIOSIS
  3. YAZZ 24+4 [Suspect]
     Active Substance: DROSPIRENONE\ETHINYL ESTRADIOL
     Indication: ENDOMETRIOSIS
  4. GINERA [Suspect]
     Active Substance: ETHINYL ESTRADIOL\GESTODENE
     Indication: ENDOMETRIOSIS
     Dosage: UNK
  5. GINERA [Suspect]
     Active Substance: ETHINYL ESTRADIOL\GESTODENE
     Indication: ENDOMETRIOSIS
     Dosage: UNK
     Dates: start: 2001, end: 2007

REACTIONS (6)
  - Gastrointestinal disorder [None]
  - Alopecia [None]
  - Product use issue [None]
  - Menorrhagia [None]
  - Depression [None]
  - Surgery [None]
